FAERS Safety Report 14405297 (Version 1)
Quarter: 2018Q1

REPORT INFORMATION
  Report Type: Spontaneous
  Country: SA (occurrence: SA)
  Receive Date: 20180118
  Receipt Date: 20180118
  Transmission Date: 20180509
  Serious: Yes (Hospitalization, Other)
  Sender: FDA-Public Use
  Company Number: SA-BAYER-2018-008377

PATIENT
  Age: 18 Month
  Sex: Male

DRUGS (8)
  1. CIPROFLOXACIN BETAIN [Suspect]
     Active Substance: CIPROFLOXACIN
     Indication: IMMUNODEFICIENCY
  2. RIFAMPIN. [Concomitant]
     Active Substance: RIFAMPIN
  3. ISONIAZID. [Concomitant]
     Active Substance: ISONIAZID
  4. CEFOTAXIME [Concomitant]
     Active Substance: CEFOTAXIME SODIUM
  5. ETHAMBUTOL [Concomitant]
     Active Substance: ETHAMBUTOL HYDROCHLORIDE
  6. CIPROFLOXACIN BETAIN [Suspect]
     Active Substance: CIPROFLOXACIN
     Indication: DISSEMINATED BACILLUS CALMETTE-GUERIN INFECTION
  7. CIPROFLOXACIN BETAIN [Suspect]
     Active Substance: CIPROFLOXACIN
     Indication: SALMONELLOSIS
  8. AMIKACIN [Concomitant]
     Active Substance: AMIKACIN

REACTIONS (5)
  - Off label use [None]
  - Sepsis [Recovered/Resolved]
  - Product use in unapproved indication [None]
  - Drug ineffective [None]
  - Gastroenteritis [Recovered/Resolved]
